FAERS Safety Report 10223669 (Version 2)
Quarter: 2014Q2

REPORT INFORMATION
  Report Type: Report from Study
  Country: BR (occurrence: BR)
  Receive Date: 20140609
  Receipt Date: 20140609
  Transmission Date: 20141212
  Serious: Yes (Hospitalization)
  Sender: FDA-Public Use
  Company Number: BR-ROCHE-766139

PATIENT
  Age: 56 Year
  Sex: Female
  Weight: 50 kg

DRUGS (8)
  1. RITUXIMAB [Suspect]
     Indication: RHEUMATOID ARTHRITIS
     Dosage: FORM : INFUSION, FREQUENCY:UNSPECIFIED
     Route: 042
     Dates: start: 20110303, end: 20110331
  2. ACTEMRA [Suspect]
     Indication: RHEUMATOID ARTHRITIS
     Route: 065
     Dates: start: 20130626
  3. CALCIUM CARBONATE [Concomitant]
     Route: 065
  4. ALENDRONATE SODIUM [Concomitant]
     Route: 065
  5. ARAVA [Concomitant]
     Route: 065
  6. METHOTREXATE [Concomitant]
     Route: 065
  7. PREDNISONE [Concomitant]
     Route: 065
  8. FOLIC ACID [Concomitant]

REACTIONS (11)
  - Abdominal pain [Recovered/Resolved]
  - Constipation [Unknown]
  - Dysuria [Unknown]
  - Cold sweat [Unknown]
  - Syncope [Recovered/Resolved]
  - Infection [Recovered/Resolved]
  - Peripheral swelling [Not Recovered/Not Resolved]
  - Pain [Not Recovered/Not Resolved]
  - Emotional disorder [Not Recovered/Not Resolved]
  - Gait disturbance [Not Recovered/Not Resolved]
  - Infection [Recovered/Resolved]
